FAERS Safety Report 6045280-4 (Version None)
Quarter: 2009Q1

REPORT INFORMATION
  Report Type: 
  Country: None (occurrence: None)
  Receive Date: 20090121
  Receipt Date: 20090112
  Transmission Date: 20090719
  Serious: Yes (Hospitalization)
  Sender: FDA-Public Use
  Company Number: PHHY2008MX08483

PATIENT
  Age: 60 Year
  Sex: Female

DRUGS (4)
  1. ACLASTA [Suspect]
     Dosage: 5MG/100ML
     Dates: start: 20080501
  2. CELEBREX [Concomitant]
     Dosage: 1 TABLET/DAY
  3. ARCOXIA [Concomitant]
     Dosage: 1 TABLET/DAY
  4. ACETAMINOPHEN W/ CODEINE [Concomitant]
     Dosage: 750 MG/DAY

REACTIONS (4)
  - DRY MOUTH [None]
  - FEELING HOT [None]
  - HEADACHE [None]
  - NAUSEA [None]
